FAERS Safety Report 4581611-X (Version None)
Quarter: 2005Q1

REPORT INFORMATION
  Report Type: 
  Country: None (occurrence: None)
  Receive Date: 20050214
  Receipt Date: 20041202
  Transmission Date: 20050727
  Serious: No
  Sender: FDA-Public Use
  Company Number: US-GLAXOSMITHKLINE-A0535894A

PATIENT
  Age: 42 Year
  Sex: Female

DRUGS (9)
  1. LAMICTAL [Suspect]
     Indication: BIPOLAR DISORDER
     Dosage: 150MG PER DAY
     Route: 048
  2. SINGULAIR [Concomitant]
  3. LEXAPRO [Concomitant]
  4. PREVACID [Concomitant]
  5. SEROQUEL [Concomitant]
  6. ZELNORM [Concomitant]
  7. ALBUTEROL [Concomitant]
  8. ADVAIR DISKUS 100/50 [Concomitant]
  9. WELLBUTRIN [Concomitant]

REACTIONS (2)
  - BLOOD POTASSIUM DECREASED [None]
  - URINARY TRACT INFECTION [None]
